FAERS Safety Report 4552267-7 (Version None)
Quarter: 2004Q4

REPORT INFORMATION
  Report Type: 
  Country: None (occurrence: None)
  Receive Date: 20041217
  Receipt Date: 20040803
  Transmission Date: 20050328
  Serious: No
  Sender: FDA-Public Use
  Company Number: 2004-BP-06462BP

PATIENT
  Age: 68 Year
  Sex: Male

DRUGS (6)
  1. SPIRIVA [Suspect]
     Indication: CHRONIC OBSTRUCTIVE AIRWAYS DISEASE
     Dosage: 18 MCG (18 MCG, DAILY), IH
     Route: 055
  2. ALBUTEROL [Concomitant]
  3. THEOPHYLLINE [Concomitant]
  4. GUAIFENESIN (GUAIFENESIN) [Concomitant]
  5. OXYGEN (OXYGEN) [Concomitant]
  6. ACCUPRIL [Concomitant]

REACTIONS (3)
  - DRY MOUTH [None]
  - HOARSENESS [None]
  - UPPER RESPIRATORY TRACT INFECTION [None]
